FAERS Safety Report 12515931 (Version 2)
Quarter: 2018Q3

REPORT INFORMATION
  Report Type: Spontaneous
  Country: US (occurrence: US)
  Receive Date: 20160630
  Receipt Date: 20180914
  Transmission Date: 20181010
  Serious: Yes (Other)
  Sender: FDA-Public Use
  Company Number: US-JNJFOC-20160521329

PATIENT

DRUGS (2)
  1. XARELTO [Suspect]
     Active Substance: RIVAROXABAN
     Indication: PRODUCT USED FOR UNKNOWN INDICATION
     Route: 048
     Dates: start: 201505, end: 201511
  2. XARELTO [Suspect]
     Active Substance: RIVAROXABAN
     Indication: PRODUCT USED FOR UNKNOWN INDICATION
     Route: 048
     Dates: start: 201506, end: 201512

REACTIONS (2)
  - Gastrointestinal haemorrhage [Unknown]
  - Internal haemorrhage [Unknown]

NARRATIVE: CASE EVENT DATE: 20151119
